FAERS Safety Report 4365246-X (Version None)
Quarter: 2004Q2

REPORT INFORMATION
  Report Type: 
  Country: None (occurrence: None)
  Receive Date: 20040525
  Receipt Date: 20040416
  Transmission Date: 20050107
  Serious: No
  Sender: FDA-Public Use
  Company Number: PHEH2004US04346

PATIENT
  Age: 51 Year
  Sex: Male

DRUGS (27)
  1. ZELNORM [Suspect]
     Indication: IRRITABLE BOWEL SYNDROME
     Dosage: 3 MG, QHS, ORAL
     Route: 048
     Dates: start: 20040407
  2. FUROSEMIDE [Concomitant]
  3. ATENOLOL [Concomitant]
  4. TRAZODONE HCL [Concomitant]
  5. ZOCOR [Concomitant]
  6. ASPIRIN [Concomitant]
  7. TEMAZEPAM [Concomitant]
  8. AMITRIPTYLINE HCL [Concomitant]
  9. SUCRALFATE [Concomitant]
  10. RABEPRAZOLE SODIUM [Concomitant]
  11. OXYCODONE HCL [Concomitant]
  12. METOCLOPRAMIDE [Concomitant]
  13. GABAPENTIN [Concomitant]
  14. MEPROBAMATE [Concomitant]
  15. VITAMIN C [Concomitant]
  16. FOLIC ACID [Concomitant]
  17. THIAMINE HCL [Concomitant]
  18. CALCIUM [Concomitant]
  19. VITAMIN D [Concomitant]
  20. MEPRAZINE (THIORIDAZINE) [Concomitant]
  21. GEMFIBROZIL [Concomitant]
  22. METHADONE (METHADONE) [Concomitant]
  23. SENNA [Concomitant]
  24. METHOTREXATE [Concomitant]
  25. FOSAMAX [Concomitant]
  26. MIGREX PINK (BUCLIZINE HYDROCHLORIDE) [Concomitant]
  27. OMEPRAZOLE [Concomitant]

REACTIONS (1)
  - CONSTIPATION [None]
